FAERS Safety Report 8793470 (Version 5)
Quarter: 2013Q2

REPORT INFORMATION
  Report Type: Spontaneous
  Country: JP (occurrence: JP)
  Receive Date: 20120918
  Receipt Date: 20130408
  Transmission Date: 20140414
  Serious: Yes (Other)
  Sender: FDA-Public Use
  Company Number: PHHY2012JP077952

PATIENT
  Sex: 0

DRUGS (5)
  1. CICLOSPORIN [Suspect]
     Indication: HISTIOCYTOSIS HAEMATOPHAGIC
     Route: 048
  2. VINCRISTINE [Suspect]
     Indication: HISTIOCYTOSIS HAEMATOPHAGIC
     Route: 042
  3. CYCLOPHOSPHAMIDE [Suspect]
     Indication: HISTIOCYTOSIS HAEMATOPHAGIC
  4. PREDNISOLONE [Suspect]
     Indication: HISTIOCYTOSIS HAEMATOPHAGIC
     Route: 048
  5. THP-ADIRAMYCIN [Suspect]
     Indication: HISTIOCYTOSIS HAEMATOPHAGIC

REACTIONS (5)
  - Posterior reversible encephalopathy syndrome [Unknown]
  - Putamen haemorrhage [Unknown]
  - Depressed level of consciousness [Unknown]
  - Blood pressure increased [Unknown]
  - Central nervous system lesion [Unknown]
